FAERS Safety Report 8887439 (Version 1)
Quarter: 2012Q4

REPORT INFORMATION
  Report Type: Spontaneous
  Country: US (occurrence: None)
  Receive Date: 20121101
  Receipt Date: 20121101
  Transmission Date: 20130627
  Serious: No
  Sender: FDA-Public Use
  Company Number: None

PATIENT
  Age: 65 Year
  Sex: Female
  Weight: 83.46 kg

DRUGS (1)
  1. ATOVAQUONE + PROGUANIL HYDROCHLORIDE [Suspect]
     Indication: MALARIA
     Dosage: 1 tablet 1/day oral w/food
     Route: 048
     Dates: start: 20120912, end: 20120915

REACTIONS (5)
  - Nausea [None]
  - Dizziness [None]
  - Diarrhoea [None]
  - Abdominal pain [None]
  - Abdominal pain [None]
